FAERS Safety Report 4918913-0 (Version None)
Quarter: 2006Q1

REPORT INFORMATION
  Report Type: 
  Country: None (occurrence: None)
  Receive Date: 20060222
  Receipt Date: 20050606
  Transmission Date: 20060701
  Serious: Yes (Hospitalization, Other)
  Sender: FDA-Public Use
  Company Number: US-MERCK-0506USA01031

PATIENT
  Age: 32 Year
  Sex: Male
  Weight: 64 kg

DRUGS (2)
  1. VIOXX [Suspect]
     Indication: PAIN
     Route: 048
     Dates: start: 20011204, end: 20030428
  2. VIOXX [Suspect]
     Route: 048
     Dates: start: 20011204, end: 20030428

REACTIONS (21)
  - ANGINA PECTORIS [None]
  - CARDIAC DISORDER [None]
  - CARDIOVASCULAR DISORDER [None]
  - CEREBROVASCULAR ACCIDENT [None]
  - CORONARY ARTERY DISEASE [None]
  - DEEP VEIN THROMBOSIS [None]
  - DERMATITIS ATOPIC [None]
  - DYSLIPIDAEMIA [None]
  - EMBOLISM [None]
  - FATIGUE [None]
  - GASTROOESOPHAGEAL REFLUX DISEASE [None]
  - HEADACHE [None]
  - HERPES ZOSTER [None]
  - HIATUS HERNIA [None]
  - INSOMNIA [None]
  - MUSCULOSKELETAL CHEST PAIN [None]
  - MYOCARDIAL INFARCTION [None]
  - PNEUMONIA [None]
  - PRESCRIBED OVERDOSE [None]
  - RHINITIS ALLERGIC [None]
  - URINARY TRACT INFECTION [None]
